FAERS Safety Report 8139580-1 (Version None)
Quarter: 2012Q1

REPORT INFORMATION
  Report Type: 
  Country: None (occurrence: None)
  Receive Date: 20120215
  Receipt Date: 20120206
  Transmission Date: 20120608
  Serious: Yes (Other)
  Sender: FDA-Public Use
  Company Number: PHHY2012IT011568

PATIENT

DRUGS (3)
  1. SINTROM [Concomitant]
     Dosage: 4 MG, UNK
     Route: 048
     Dates: start: 20091210, end: 20120201
  2. TASIGNA [Suspect]
     Indication: CHRONIC MYELOID LEUKAEMIA
     Dosage: 800 MG, DAILY
     Route: 048
     Dates: start: 20110413, end: 20111221
  3. CORDARONE [Concomitant]
     Dosage: 200 MG, DAILY
     Route: 048
     Dates: start: 20110413

REACTIONS (5)
  - ARTERIAL DISORDER [None]
  - BLOOD GLUCOSE INCREASED [None]
  - INTERMITTENT CLAUDICATION [None]
  - BLOOD CHOLESTEROL INCREASED [None]
  - ARTERIOSCLEROSIS [None]
